FAERS Safety Report 9576144 (Version 1)
Quarter: 2013Q4

REPORT INFORMATION
  Report Type: Spontaneous
  Country: US (occurrence: US)
  Receive Date: 20131001
  Receipt Date: 20131001
  Transmission Date: 20140711
  Serious: No
  Sender: FDA-Public Use
  Company Number: US-AMGEN-USASP2013001290

PATIENT
  Age: 56 Year
  Sex: Female
  Weight: 73.92 kg

DRUGS (8)
  1. ENBREL [Suspect]
     Indication: RHEUMATOID ARTHRITIS
     Dosage: 50 MG/ML, QWK
     Route: 058
  2. EFFEXOR XR [Concomitant]
     Dosage: 75 MG, UNK
     Route: 048
  3. AMBIEN [Concomitant]
     Dosage: 10 MG, UNK
     Route: 048
  4. METHOTREXATE [Concomitant]
     Dosage: 2.5 MG, UNK
     Route: 048
  5. PREDNISONE [Concomitant]
     Dosage: 2.5 MG, UNK
     Route: 048
  6. HUMIRA [Concomitant]
     Dosage: 40 MG, UNK
     Route: 058
  7. TRAMADOL HCL [Concomitant]
     Dosage: 50 MG, UNK
     Route: 048
  8. FISH OIL [Concomitant]
     Route: 048

REACTIONS (1)
  - Therapeutic response decreased [Unknown]
